FAERS Safety Report 14318777 (Version 1)
Quarter: 2017Q4

REPORT INFORMATION
  Report Type: Spontaneous
  Country: US (occurrence: US)
  Receive Date: 20171222
  Receipt Date: 20171222
  Transmission Date: 20180321
  Serious: No
  Sender: FDA-Public Use
  Company Number: US-TAKEDA-2017TUS026463

PATIENT
  Age: 24 Year
  Sex: Female
  Weight: 48.53 kg

DRUGS (3)
  1. ASACOL [Concomitant]
     Active Substance: MESALAMINE
     Indication: COLITIS ULCERATIVE
     Dosage: 800 MG, UNK
  2. ENTYVIO [Suspect]
     Active Substance: VEDOLIZUMAB
     Indication: COLITIS ULCERATIVE
     Dosage: 300 MG, UNK
     Route: 042
     Dates: start: 201602
  3. BENTYL [Concomitant]
     Active Substance: DICYCLOMINE HYDROCHLORIDE
     Dosage: UNK

REACTIONS (1)
  - Skin discolouration [Recovered/Resolved]

NARRATIVE: CASE EVENT DATE: 201711
